FAERS Safety Report 26189462 (Version 1)
Quarter: 2025Q4

REPORT INFORMATION
  Report Type: Spontaneous
  Country: None (occurrence: EU)
  Receive Date: 20251223
  Receipt Date: 20251223
  Transmission Date: 20260117
  Serious: Yes (Life-Threatening, Hospitalization, Other)
  Sender: HIKMA
  Company Number: None

PATIENT
  Age: 75 Year
  Sex: Female

DRUGS (3)
  1. GEMCITABINE [Suspect]
     Active Substance: GEMCITABINE
     Indication: Product used for unknown indication
     Dosage: 1000 MILLIGRAM PER CUBIC METRE, 4W 1-8 EVERY 28 DAYS, DOSE REDUCED BY 25%
     Dates: start: 20250724, end: 20251119
  2. CISPLATIN [Suspect]
     Active Substance: CISPLATIN
     Indication: Product used for unknown indication
     Dosage: 25 MILLIGRAM PER CUBIC METRE, 4W (DAYS 1-8 EVERY 28 DAYS, REDUCED DOSE 25%)
     Dates: start: 20250724, end: 20251119
  3. IMFINZI [Suspect]
     Active Substance: DURVALUMAB
     Indication: Cholangiocarcinoma
     Dosage: 1500 MG EVERY 28 DAYS
     Dates: start: 20250814, end: 20251021

REACTIONS (3)
  - Inappropriate antidiuretic hormone secretion [Recovered/Resolved with Sequelae]
  - Hyperpyrexia [Recovering/Resolving]
  - Vomiting [Recovering/Resolving]

NARRATIVE: CASE EVENT DATE: 20250929
